FAERS Safety Report 5107140-2 (Version None)
Quarter: 2006Q3

REPORT INFORMATION
  Report Type: 
  Country: None (occurrence: None)
  Receive Date: 20060731
  Receipt Date: 20060410
  Transmission Date: 20061208
  Serious: No
  Sender: FDA-Public Use
  Company Number: 2006PV011833

PATIENT
  Age: 64 Year
  Sex: Female

DRUGS (5)
  1. BYETTA [Suspect]
     Indication: DIABETES MELLITUS NON-INSULIN-DEPENDENT
     Dosage: 5 MCG;BID;SC
     Route: 058
     Dates: start: 20060408
  2. METFORMIN HCL [Concomitant]
  3. GLYBURIDE [Concomitant]
  4. PAXIL [Concomitant]
  5. AVANDAMET [Concomitant]

REACTIONS (5)
  - DECREASED APPETITE [None]
  - FATIGUE [None]
  - FEELING JITTERY [None]
  - HUNGER [None]
  - HYPERSOMNIA [None]
